FAERS Safety Report 10581347 (Version 1)
Quarter: 2014Q4

REPORT INFORMATION
  Report Type: Spontaneous
  Country: US (occurrence: None)
  Receive Date: 20141110
  Receipt Date: 20141110
  Transmission Date: 20150529
  Serious: Yes (Other)
  Sender: FDA-Public Use
  Company Number: 001825321A

PATIENT
  Age: 14 Year
  Sex: Male

DRUGS (2)
  1. PROACTIV PLUS PORE TARGETING TREATMENT [Suspect]
     Active Substance: BENZOYL PEROXIDE
     Indication: ACNE
     Dosage: ONCE DERMAL
     Dates: start: 20141005
  2. PROACTIVPLUS SKIN SMOOTHING EXFOLIATOR [Suspect]
     Active Substance: BENZOYL PEROXIDE
     Indication: ACNE
     Dosage: ONCE DERMAL
     Dates: start: 20141005

REACTIONS (1)
  - Urticaria [None]

NARRATIVE: CASE EVENT DATE: 20141006
